FAERS Safety Report 23100752 (Version 2)
Quarter: 2023Q4

REPORT INFORMATION
  Report Type: Spontaneous
  Country: US (occurrence: US)
  Receive Date: 20231024
  Receipt Date: 20231110
  Transmission Date: 20240110
  Serious: Yes (Hospitalization)
  Sender: FDA-Public Use
  Company Number: US-Fresenius Medical Care Renal Therapies Group-FMC-2310-001131

PATIENT
  Age: 56 Year
  Sex: Female
  Weight: 74.6 kg

DRUGS (1)
  1. DELFLEX [Suspect]
     Active Substance: CALCIUM CHLORIDE\DEXTROSE\MAGNESIUM CHLORIDE\SODIUM CHLORIDE\SODIUM LACTATE
     Dosage: 7 DAYS-A-WEEK, 1.5%, 2.5%, 4.25% DIALYSATE, EXCHANGES = 4, EXCHANGE VOLUME = 2300 ML, DWELL TIME = 1
     Route: 033

REACTIONS (2)
  - Peritonitis [Unknown]
  - Catheter site infection [Unknown]
